FAERS Safety Report 17229170 (Version 1)
Quarter: 2020Q1

REPORT INFORMATION
  Report Type: Spontaneous
  Country: DE (occurrence: DE)
  Receive Date: 20200103
  Receipt Date: 20200103
  Transmission Date: 20200409
  Serious: Yes (Hospitalization)
  Sender: FDA-Public Use
  Company Number: DE-TEVA-2019-DE-1160830

PATIENT
  Age: 67 Year
  Sex: Female

DRUGS (6)
  1. AMLODIPINE [Concomitant]
     Active Substance: AMLODIPINE BESYLATE
     Dosage: 5 MILLIGRAM DAILY; 5 MG, 1-0-0-0,
     Route: 048
  2. COTRIM FORTE-RATIOPHARM 960 MG TABLETTEN [Suspect]
     Active Substance: SULFAMETHOXAZOLE\TRIMETHOPRIM
     Route: 048
  3. CYSTINOL AKUT DRAGEES [Suspect]
     Active Substance: ARCTOSTAPHYLOS UVA-URSI LEAF
     Route: 048
  4. CLOMIPRAMIN-1A PHARMA [Suspect]
     Active Substance: CLOMIPRAMINE HYDROCHLORIDE
     Dosage: 1.5 DOSAGE FORMS DAILY; 75 MG, 1.5-0-0-0,
     Route: 048
  5. OPIPRAMOL [Concomitant]
     Active Substance: OPIPRAMOL
     Dosage: .5 DOSAGE FORMS DAILY; 100 MG, 0-0-0.5-0
     Route: 048
  6. BISOPROLOL [Suspect]
     Active Substance: BISOPROLOL
     Dosage: 5 MILLIGRAM DAILY; 5 MG, 1-0-0-0, TABLET
     Route: 048

REACTIONS (2)
  - Pyrexia [Unknown]
  - General physical health deterioration [Unknown]
